FAERS Safety Report 6703383-2 (Version None)
Quarter: 2010Q2

REPORT INFORMATION
  Report Type: 
  Country: None (occurrence: None)
  Receive Date: 20100430
  Receipt Date: 20100426
  Transmission Date: 20101027
  Serious: Yes (Death)
  Sender: FDA-Public Use
  Company Number: TN-JNJFOC-20100407382

PATIENT
  Age: 26 Year
  Sex: Female

DRUGS (1)
  1. SPORANOX [Suspect]
     Indication: DERMATOPHYTOSIS

REACTIONS (4)
  - DRUG INEFFECTIVE [None]
  - DYSPNOEA [None]
  - OBSTRUCTION [None]
  - PHARYNGEAL ABSCESS [None]
